FAERS Safety Report 23757262 (Version 1)
Quarter: 2024Q2

REPORT INFORMATION
  Report Type: Spontaneous
  Country: US (occurrence: None)
  Receive Date: 20240418
  Receipt Date: 20240418
  Transmission Date: 20240716
  Serious: No
  Sender: FDA-Public Use
  Company Number: None

PATIENT
  Age: 77 Year
  Sex: Female

DRUGS (1)
  1. RETACRIT [Suspect]
     Active Substance: EPOETIN ALFA-EPBX
     Indication: Anaemia
     Dosage: 0.5ML EVERY 4 WEEKS SUBCUTNEOUS
     Route: 058

REACTIONS (2)
  - Multiple use of single-use product [None]
  - Wrong technique in product usage process [None]

NARRATIVE: CASE EVENT DATE: 20240418
